FAERS Safety Report 21534981 (Version 1)
Quarter: 2022Q4

REPORT INFORMATION
  Report Type: Spontaneous
  Country: IR (occurrence: IR)
  Receive Date: 20221101
  Receipt Date: 20221101
  Transmission Date: 20230112
  Serious: Yes (Death, Hospitalization, Other)
  Sender: FDA-Public Use
  Company Number: IR-GLAXOSMITHKLINE-IR2022GSK156117

PATIENT

DRUGS (1)
  1. SUMATRIPTAN SUCCINATE [Suspect]
     Active Substance: SUMATRIPTAN SUCCINATE
     Indication: Product used for unknown indication
     Dosage: 6 MG/0.5 ML SOLUTIONS, 30 VIALS
     Route: 042

REACTIONS (22)
  - Toxicity to various agents [Unknown]
  - Pneumonia [Fatal]
  - Hyperhidrosis [Unknown]
  - Agitation [Unknown]
  - Hallucination [Unknown]
  - Urinary incontinence [Unknown]
  - Tachycardia [Unknown]
  - Hypernatraemia [Unknown]
  - Haematuria [Unknown]
  - Proteinuria [Unknown]
  - Bedridden [Unknown]
  - Cardio-respiratory arrest [Fatal]
  - Suicide attempt [Unknown]
  - Anal incontinence [Unknown]
  - Pulmonary embolism [Unknown]
  - Haemodynamic instability [Unknown]
  - Troponin increased [Unknown]
  - Blood creatinine increased [Unknown]
  - Hepatic enzyme increased [Unknown]
  - Blood creatine phosphokinase increased [Unknown]
  - Blood lactate dehydrogenase increased [Unknown]
  - Nephritic syndrome [Unknown]

NARRATIVE: CASE EVENT DATE: 20220201
